FAERS Safety Report 4503529-0 (Version None)
Quarter: 2004Q4

REPORT INFORMATION
  Report Type: 
  Country: None (occurrence: None)
  Receive Date: 20041117
  Receipt Date: 20041020
  Transmission Date: 20050328
  Serious: Yes (Hospitalization)
  Sender: FDA-Public Use
  Company Number: PHBS2004JP13967

PATIENT
  Age: 70 Year
  Sex: Female
  Weight: 68 kg

DRUGS (8)
  1. GLEEVEC [Suspect]
     Indication: CHRONIC MYELOID LEUKAEMIA
     Dosage: 400 MG, QD
     Route: 048
     Dates: start: 20040512, end: 20040613
  2. GLEEVEC [Suspect]
     Dosage: 200 MG/D
     Route: 048
     Dates: start: 20040614, end: 20040711
  3. GLEEVEC [Suspect]
     Dosage: 300 MG/D
     Route: 048
     Dates: start: 20040712, end: 20040815
  4. GLEEVEC [Suspect]
     Dosage: 200 MG/D
     Route: 048
     Dates: start: 20040816
  5. DIOVAN [Concomitant]
     Indication: HYPERTENSION
     Dosage: 80 MG/D
     Route: 048
     Dates: start: 20031022
  6. ALTAT [Concomitant]
     Indication: DUODENAL ULCER
     Dosage: 150 MG/D
     Route: 048
     Dates: start: 20030609, end: 20041003
  7. URSOSAN [Concomitant]
     Indication: HEPATITIS C
     Dosage: 300 MG/D
     Route: 048
     Dates: start: 20030609
  8. NEOPHAGEN [Concomitant]
     Indication: HEPATITIS C
     Dates: start: 20030609, end: 20040628

REACTIONS (18)
  - ADENOMATOUS POLYPOSIS COLI [None]
  - ANAEMIA [None]
  - ANOREXIA [None]
  - DIARRHOEA [None]
  - FACE OEDEMA [None]
  - FAECAL OCCULT BLOOD POSITIVE [None]
  - GASTRITIS EROSIVE [None]
  - GASTROINTESTINAL HAEMORRHAGE [None]
  - GASTROINTESTINAL OEDEMA [None]
  - HAEMOGLOBIN DECREASED [None]
  - MALAISE [None]
  - MELAENA [None]
  - OEDEMA PERIPHERAL [None]
  - PLATELET COUNT DECREASED [None]
  - PYREXIA [None]
  - RED BLOOD CELL COUNT DECREASED [None]
  - VOMITING [None]
  - WHITE BLOOD CELL COUNT DECREASED [None]
